FAERS Safety Report 9657625 (Version 2)
Quarter: 2013Q4

REPORT INFORMATION
  Report Type: Spontaneous
  Country: IT (occurrence: IT)
  Receive Date: 20131030
  Receipt Date: 20131206
  Transmission Date: 20140711
  Serious: Yes (Hospitalization)
  Sender: FDA-Public Use
  Company Number: IT-PFIZER INC-2013309255

PATIENT
  Age: 58 Year
  Sex: Male

DRUGS (7)
  1. CO-AMOXICLAV [Suspect]
     Indication: PERIODONTAL DISEASE
     Dosage: 875/125MG, UNK
     Route: 065
     Dates: start: 201201
  2. CO-AMOXICLAV [Suspect]
     Indication: PROPHYLAXIS
  3. DOXAZOSIN MESILATE [Suspect]
     Indication: PRODUCT USED FOR UNKNOWN INDICATION
     Dosage: 2 MG, DAILY
     Route: 065
  4. DOXAZOSIN MESILATE [Suspect]
     Indication: HYPERTENSION
  5. TAPAZOLE [Concomitant]
     Indication: PRODUCT USED FOR UNKNOWN INDICATION
     Dosage: 5 MG, DAILY
     Route: 065
  6. TAPAZOLE [Concomitant]
     Indication: HYPERTHYROIDISM
  7. HYDROCHLOROTHIAZIDE/NEBIVOLOL HYDROCHLORIDE [Concomitant]
     Indication: HYPERTENSION
     Dosage: 12.5 /2.5 MG/DAY

REACTIONS (7)
  - Kounis syndrome [Recovered/Resolved]
  - Anaphylactic reaction [Recovered/Resolved]
  - Acute coronary syndrome [Recovered/Resolved]
  - Dyspnoea [Recovered/Resolved]
  - Chest pain [Recovered/Resolved]
  - Electrocardiogram ST segment elevation [Recovered/Resolved]
  - Rash generalised [Recovered/Resolved]
